FAERS Safety Report 5340025-5 (Version None)
Quarter: 2007Q2

REPORT INFORMATION
  Report Type: 
  Country: None (occurrence: None)
  Receive Date: 20070405
  Receipt Date: 20061031
  Transmission Date: 20071010
  Serious: No
  Sender: FDA-Public Use
  Company Number: US200611000628

PATIENT
  Age: 65 Year
  Sex: Male

DRUGS (3)
  1. CYMBALTA [Suspect]
     Indication: RADICULAR PAIN
     Dosage: SEE IMAGE
     Dates: start: 20061001, end: 20061001
  2. CYMBALTA [Suspect]
     Indication: RADICULAR PAIN
     Dosage: SEE IMAGE
     Dates: start: 20061001, end: 20061001
  3. CYMBALTA [Suspect]
     Indication: RADICULAR PAIN
     Dosage: SEE IMAGE
     Dates: start: 20061001

REACTIONS (1)
  - SEXUAL DYSFUNCTION [None]
